FAERS Safety Report 5191150-3 (Version None)
Quarter: 2006Q4

REPORT INFORMATION
  Report Type: 
  Country: None (occurrence: None)
  Receive Date: 20061226
  Receipt Date: 20061219
  Transmission Date: 20070319
  Serious: Yes (Hospitalization)
  Sender: FDA-Public Use
  Company Number: 2006PK02677

PATIENT
  Sex: Female

DRUGS (2)
  1. BELOC ZOK [Suspect]
     Dates: start: 20060801
  2. LIVIELLA [Concomitant]

REACTIONS (2)
  - HAEMATURIA [None]
  - PLATELET DISORDER [None]
